FAERS Safety Report 8885567 (Version 2)
Quarter: 2012Q4

REPORT INFORMATION
  Report Type: 
  Country: TR (occurrence: TR)
  Receive Date: 20121101
  Receipt Date: 20121108
  Transmission Date: 20130627
  Serious: Yes (Other)
  Sender: FDA-Public Use
  Company Number: TR-ABBOTT-12P-161-1001805-00

PATIENT
  Age: 22 Year
  Sex: Male

DRUGS (10)
  1. VALPROIC ACID [Suspect]
     Indication: TARDIVE DYSKINESIA
  2. LITHIUM ACETATE [Suspect]
     Indication: BIPOLAR DISORDER
     Dates: start: 1994
  3. LITHIUM ACETATE [Suspect]
  4. CHLORPROMAZINE [Suspect]
     Indication: BIPOLAR DISORDER
     Dates: start: 2001
  5. CHLORPROMAZINE [Suspect]
     Dates: end: 2008
  6. CLOZAPINE [Suspect]
     Indication: TARDIVE DYSKINESIA
  7. TRIHEXYPHENIDYL HYDROCHLORIDE [Suspect]
     Indication: TARDIVE DYSKINESIA
  8. TRIHEXYPHENIDYL HYDROCHLORIDE [Suspect]
  9. PROPRANOLOL HYDROCHLORIDE [Suspect]
     Indication: TARDIVE DYSKINESIA
  10. BIPERIDEN [Concomitant]
     Indication: PRODUCT USED FOR UNKNOWN INDICATION

REACTIONS (7)
  - Dysphoria [Unknown]
  - Hypomania [Recovered/Resolved]
  - Tardive dyskinesia [Recovering/Resolving]
  - Dystonia [Unknown]
  - Parkinsonism [Unknown]
  - Restlessness [Unknown]
  - Off label use [Unknown]
